FAERS Safety Report 24911086 (Version 1)
Quarter: 2025Q1

REPORT INFORMATION
  Report Type: Spontaneous
  Country: JP (occurrence: JP)
  Receive Date: 20250131
  Receipt Date: 20250131
  Transmission Date: 20250409
  Serious: Yes (Other)
  Sender: ALEXION PHARMACEUTICALS
  Company Number: JP-ASTRAZENECA-250009373_013120_P_1

PATIENT
  Age: 50 Year

DRUGS (1)
  1. IMFINZI [Suspect]
     Active Substance: DURVALUMAB
     Indication: Endometrial cancer

REACTIONS (2)
  - Rheumatoid arthritis [Not Recovered/Not Resolved]
  - Platelet count decreased [Not Recovered/Not Resolved]
